FAERS Safety Report 13779708 (Version 1)
Quarter: 2017Q3

REPORT INFORMATION
  Report Type: Spontaneous
  Country: DE (occurrence: DE)
  Receive Date: 20170722
  Receipt Date: 20170722
  Transmission Date: 20171127
  Serious: Yes (Other)
  Sender: FDA-Public Use
  Company Number: DE-AUROBINDO-AUR-APL-2014-04855

PATIENT
  Sex: Male

DRUGS (1)
  1. TERBINAFIN-ACTAVIS 250 MG TABLET [Suspect]
     Active Substance: TERBINAFINE
     Indication: ONYCHOMYCOSIS
     Dosage: 25 MG, UNK
     Route: 065
     Dates: start: 201401

REACTIONS (5)
  - Blood pressure increased [Unknown]
  - Flushing [Unknown]
  - Hypertension [Unknown]
  - Restlessness [Unknown]
  - Malaise [Unknown]

NARRATIVE: CASE EVENT DATE: 201401
